FAERS Safety Report 7793851-7 (Version None)
Quarter: 2011Q4

REPORT INFORMATION
  Report Type: 
  Country: None (occurrence: None)
  Receive Date: 20111004
  Receipt Date: 20110920
  Transmission Date: 20120403
  Serious: Yes (Hospitalization)
  Sender: FDA-Public Use
  Company Number: FR-BIOGENIDEC-2011BI032037

PATIENT
  Age: 41 Year
  Sex: Female
  Weight: 60 kg

DRUGS (10)
  1. LEXOMIL [Concomitant]
     Indication: SLEEP DISORDER
     Route: 048
     Dates: start: 20110901
  2. COPAXONE [Concomitant]
     Indication: MULTIPLE SCLEROSIS
     Dates: start: 20110920
  3. LIORESAL [Concomitant]
     Indication: MUSCLE SPASTICITY
     Route: 048
     Dates: end: 20110901
  4. OMIX [Concomitant]
     Route: 048
  5. PROZAC [Concomitant]
     Route: 048
  6. TYSABRI [Suspect]
     Indication: MULTIPLE SCLEROSIS
     Route: 042
     Dates: start: 20081121, end: 20110718
  7. LYRICA [Concomitant]
     Route: 048
     Dates: end: 20110901
  8. LYRICA [Concomitant]
     Route: 048
     Dates: start: 20110901
  9. CLONAZEPAM [Concomitant]
     Route: 048
  10. LIORESAL [Concomitant]
     Route: 048
     Dates: start: 20110901

REACTIONS (1)
  - PROGRESSIVE MULTIFOCAL LEUKOENCEPHALOPATHY [None]
